FAERS Safety Report 19913629 (Version 1)
Quarter: 2021Q4

REPORT INFORMATION
  Report Type: Spontaneous
  Country: DE (occurrence: DE)
  Receive Date: 20211004
  Receipt Date: 20211004
  Transmission Date: 20220303
  Serious: Yes (Hospitalization)
  Sender: FDA-Public Use
  Company Number: DE-002147023-NVSC2021DE122324

PATIENT
  Age: 46 Year
  Sex: Male

DRUGS (7)
  1. HYDROCHLOROTHIAZIDE [Suspect]
     Active Substance: HYDROCHLOROTHIAZIDE
     Indication: Product used for unknown indication
     Dosage: 12.5 MILLIGRAM, QD (1-0-0-0)
     Route: 048
  2. TRIMIPRAMINE [Suspect]
     Active Substance: TRIMIPRAMINE
     Indication: Product used for unknown indication
     Dosage: 25 MG, QD, 1-0-0-0
     Route: 048
  3. BISOPROLOL [Concomitant]
     Active Substance: BISOPROLOL
     Indication: Product used for unknown indication
     Dosage: 5 MILLIGRAM, QD (1-0-0-0 DOSAGE FORM)
     Route: 048
  4. SPIRONOLACTONE [Concomitant]
     Active Substance: SPIRONOLACTONE
     Indication: Product used for unknown indication
     Dosage: 0.5 DOSAGE FORM, QD (0.5-0-0-0 DOSAGE FORM)
     Route: 048
  5. AMLODIPINE AND VALSARTAN [Concomitant]
     Active Substance: AMLODIPINE\VALSARTAN
     Indication: Product used for unknown indication
     Dosage: UNK, 10/160 MG, 1-0-0-0
     Route: 048
  6. MIRTAZAPINE [Concomitant]
     Active Substance: MIRTAZAPINE
     Indication: Product used for unknown indication
     Dosage: 30 MG, 1-0-0-0
     Route: 048
  7. LEVOTHYROXINE [Concomitant]
     Active Substance: LEVOTHYROXINE
     Indication: Product used for unknown indication
     Dosage: 50 UG, QD, 1-0-0-0 DOSAGE FORM
     Route: 048

REACTIONS (2)
  - Erythema [Unknown]
  - Pyrexia [Unknown]
